FAERS Safety Report 9844998 (Version 1)
Quarter: 2014Q1

REPORT INFORMATION
  Report Type: Spontaneous
  Country: US (occurrence: None)
  Receive Date: 20140122
  Receipt Date: 20140122
  Transmission Date: 20141002
  Serious: Yes (Death)
  Sender: FDA-Public Use
  Company Number: 2014AP000364

PATIENT
  Age: 40 Year
  Sex: Female

DRUGS (8)
  1. TRAMADOL HYDROCHLORIDE [Suspect]
     Route: 048
  2. TRAZODONE HYDROCHLORIDE [Suspect]
     Route: 048
  3. FENTANYL [Suspect]
     Dosage: TRANSDERMAL.
  4. ALPRAZOLAM [Suspect]
     Route: 048
  5. CLONAZEPAM [Suspect]
     Route: 048
  6. AMITRIPTYLINE [Suspect]
     Route: 048
  7. FLUOXETINE HYDROCHLORIDE [Suspect]
     Route: 048
  8. ETHANOL [Suspect]

REACTIONS (1)
  - Drug abuse [None]
